FAERS Safety Report 24879808 (Version 2)
Quarter: 2025Q2

REPORT INFORMATION
  Report Type: Report from Study
  Country: US (occurrence: US)
  Receive Date: 20250123
  Receipt Date: 20250418
  Transmission Date: 20250717
  Serious: Yes (Other)
  Sender: TEVA
  Company Number: US-TEVA-VS-3288096

PATIENT
  Age: 70 Year
  Sex: Male

DRUGS (1)
  1. AUSTEDO [Suspect]
     Active Substance: DEUTETRABENAZINE
     Indication: Tardive dyskinesia
     Route: 065
     Dates: start: 20240710, end: 202502

REACTIONS (13)
  - Condition aggravated [Unknown]
  - Urinary incontinence [Not Recovered/Not Resolved]
  - Slow response to stimuli [Unknown]
  - Speech disorder [Unknown]
  - Feeling abnormal [Unknown]
  - Anal incontinence [Not Recovered/Not Resolved]
  - Dementia [Unknown]
  - Drug hypersensitivity [Unknown]
  - Gait inability [Unknown]
  - Personality disorder [Unknown]
  - Staring [Unknown]
  - Loss of personal independence in daily activities [Unknown]
  - Laziness [Unknown]

NARRATIVE: CASE EVENT DATE: 20241201
